FAERS Safety Report 24372822 (Version 3)
Quarter: 2024Q4

REPORT INFORMATION
  Report Type: Spontaneous
  Country: FR (occurrence: FR)
  Receive Date: 20240927
  Receipt Date: 20241007
  Transmission Date: 20250114
  Serious: Yes (Hospitalization, Other)
  Sender: PFIZER
  Company Number: FR-002147023-NVSC2024FR184534

PATIENT
  Age: 70 Year
  Sex: Female
  Weight: 106 kg

DRUGS (17)
  1. SUNITINIB MALATE [Interacting]
     Active Substance: SUNITINIB MALATE
     Indication: Pancreatic neuroendocrine tumour metastatic
     Dosage: 37.5 MG, 1X/DAY
     Route: 065
     Dates: start: 202203
  2. ESCITALOPRAM [Interacting]
     Active Substance: ESCITALOPRAM OXALATE
     Indication: Mixed anxiety and depressive disorder
     Dosage: 20 MG, 1X/DAY (1 TABLET IN THHE MORNING)
     Route: 065
  3. EVEROLIMUS [Suspect]
     Active Substance: EVEROLIMUS
     Indication: Pancreatic neuroendocrine tumour metastatic
     Dosage: 10 MG, 1X/DAY
     Route: 065
     Dates: start: 202211
  4. PAROXETINE [Concomitant]
     Active Substance: PAROXETINE
     Indication: Mixed anxiety and depressive disorder
     Dosage: 20 MG, 1X/DAY (1 TABLET IN THE MORNING)
     Route: 065
  5. PRAZEPAM [Concomitant]
     Active Substance: PRAZEPAM
     Indication: Mixed anxiety and depressive disorder
     Dosage: 1 DF, 1X/DAY, IN THE EVENING
  6. LYRICA [Concomitant]
     Active Substance: PREGABALIN
     Indication: Neuralgia
     Dosage: 1 DF, 1X/DAY, IN THE EVENING
  7. ALDACTONE [Concomitant]
     Active Substance: SPIRONOLACTONE
     Indication: Hypertension
     Dosage: 1 DF, 1X/DAY, IN THE MORNING
  8. ESCITALOPRAM OXALATE [Concomitant]
     Active Substance: ESCITALOPRAM OXALATE
     Dosage: 1 DF, 1X/DAY, IN THE MORNING
  9. EUPANTOL [Concomitant]
     Active Substance: PANTOPRAZOLE SODIUM
     Indication: Gastrooesophageal reflux disease
     Dosage: 1 DF, 1X/DAY, IN THE EVENING
  10. ARIMIDEX [Concomitant]
     Active Substance: ANASTROZOLE
     Indication: Breast cancer
     Dosage: 1 DF, 1X/DAY, IN THE MORNING
  11. CRESTOR [Concomitant]
     Active Substance: ROSUVASTATIN CALCIUM
     Indication: Hypercholesterolaemia
     Dosage: 1 DF, 1X/DAY, IN THE EVENING
  12. GLUCOPHAGE [Concomitant]
     Active Substance: METFORMIN HYDROCHLORIDE
     Indication: Type 2 diabetes mellitus
     Dosage: 1 DF, 3X/DAY
  13. BETAHISTINE [Concomitant]
     Active Substance: BETAHISTINE
     Indication: Dizziness
     Dosage: 1 DF, 1X/DAY, IN THE EVENING
  14. ZYRTEC [Concomitant]
     Active Substance: CETIRIZINE HYDROCHLORIDE
     Indication: Pruritus
     Dosage: 1 DF, 1X/DAY, IN THE EVENING IF NEEDED
  15. INNOVAR [Concomitant]
     Active Substance: DROPERIDOL\FENTANYL CITRATE
     Indication: Asthma
     Dosage: 1 DF, 2X/DAY, 1 DF IN THE MORNING AND 1 DF IN THE EVENING
  16. HYPROMELLOSES [Concomitant]
     Active Substance: HYPROMELLOSES
     Indication: Dry eye
     Dosage: 4 TO 6 X/DAY
  17. EFFICORT HYDROPHILE [Concomitant]
     Indication: Pruritus
     Dosage: UNK, AS NEEDED

REACTIONS (7)
  - Hypertriglyceridaemia [Unknown]
  - Hyperglycaemia [Unknown]
  - Hypercholesterolaemia [Unknown]
  - Weight decreased [Unknown]
  - Sarcopenia [Unknown]
  - General physical health deterioration [Unknown]
  - Drug interaction [Unknown]

NARRATIVE: CASE EVENT DATE: 20230301
